FAERS Safety Report 6664442-6 (Version None)
Quarter: 2010Q2

REPORT INFORMATION
  Report Type: 
  Country: None (occurrence: None)
  Receive Date: 20100401
  Receipt Date: 20100325
  Transmission Date: 20101027
  Serious: Yes (Other)
  Sender: FDA-Public Use
  Company Number: US-BAXTER-2010BH007126

PATIENT
  Age: 50 Year
  Sex: Male

DRUGS (1)
  1. IMMUNE GLOBULIN INTRAVENOUS (HUMAN) [Suspect]
     Indication: MYASTHENIC SYNDROME
     Route: 042

REACTIONS (2)
  - GLOMERULONEPHRITIS [None]
  - HAEMOLYSIS [None]
